FAERS Safety Report 7335480-5 (Version None)
Quarter: 2011Q1

REPORT INFORMATION
  Report Type: 
  Country: None (occurrence: None)
  Receive Date: 20110307
  Receipt Date: 20110224
  Transmission Date: 20110831
  Serious: Yes (Hospitalization)
  Sender: FDA-Public Use
  Company Number: US-ASTRAZENECA-2011SE10541

PATIENT
  Age: 54 Year
  Sex: Female

DRUGS (20)
  1. EFFEXOR [Concomitant]
  2. AMITRIPTYLINE [Concomitant]
  3. XANAX [Concomitant]
  4. DICYCLOMINE [Concomitant]
  5. NASAL SPRAY [Concomitant]
  6. METOPROLOL [Concomitant]
  7. CALCITRIOL [Concomitant]
  8. HYDROCHLOROTHIAZIDE [Concomitant]
  9. SIMVASTATIN [Concomitant]
  10. MECLIZINE [Concomitant]
  11. PHENERGAN [Concomitant]
  12. ENTOCORT EC [Suspect]
     Indication: COLITIS
     Route: 048
     Dates: start: 20090101
  13. SOMA [Concomitant]
  14. PREVACID [Concomitant]
  15. IMITREX [Concomitant]
  16. LOMOTIL [Concomitant]
  17. CALTRATE WITH VITAMIN D [Concomitant]
  18. GAS-X [Concomitant]
  19. PREMPRO [Concomitant]
  20. SALINE [Concomitant]

REACTIONS (3)
  - DIARRHOEA [None]
  - DEHYDRATION [None]
  - DRUG DOSE OMISSION [None]
